FAERS Safety Report 13877261 (Version 1)
Quarter: 2017Q3

REPORT INFORMATION
  Report Type: Spontaneous
  Country: US (occurrence: US)
  Receive Date: 20170817
  Receipt Date: 20170817
  Transmission Date: 20171127
  Serious: No
  Sender: FDA-Public Use
  Company Number: US-GLAXOSMITHKLINE-US2017126872

PATIENT
  Age: 72 Year
  Sex: Female

DRUGS (2)
  1. FLOVENT DISKUS [Suspect]
     Active Substance: FLUTICASONE PROPIONATE
     Indication: VIRAL INFECTION
     Dosage: 1 PUFF(S), BID
     Route: 055
     Dates: start: 20170814
  2. FLOVENT DISKUS [Suspect]
     Active Substance: FLUTICASONE PROPIONATE
     Indication: PNEUMONIA

REACTIONS (1)
  - Extra dose administered [Recovering/Resolving]

NARRATIVE: CASE EVENT DATE: 20170815
